FAERS Safety Report 10029782 (Version 1)
Quarter: 2014Q1

REPORT INFORMATION
  Report Type: Spontaneous
  Country: US (occurrence: None)
  Receive Date: 20140319
  Receipt Date: 20140319
  Transmission Date: 20141002
  Serious: Yes (Other)
  Sender: FDA-Public Use
  Company Number: 001683887A

PATIENT
  Sex: Female

DRUGS (2)
  1. PROACTIV SOLUTION RENEWING CLEANSER [Suspect]
     Indication: ACNE
     Dosage: DAILY DERMAL
     Dates: start: 20140215, end: 20140218
  2. PROACTIV SOLUTION REPAIRING TREATMENT [Suspect]
     Indication: ACNE
     Dosage: DAILY DERMAL
     Dates: start: 20140215, end: 20140218

REACTIONS (4)
  - Drug hypersensitivity [None]
  - Swelling face [None]
  - Pharyngeal oedema [None]
  - Dyspnoea [None]
